FAERS Safety Report 21632548 (Version 1)
Quarter: 2022Q4

REPORT INFORMATION
  Report Type: Report from Study
  Country: US (occurrence: US)
  Receive Date: 20221123
  Receipt Date: 20221123
  Transmission Date: 20230112
  Serious: Yes (Other)
  Sender: FDA-Public Use
  Company Number: US-GW PHARMA-2022-US-035827

PATIENT
  Sex: Female
  Weight: 54 kg

DRUGS (1)
  1. EPIDIOLEX [Suspect]
     Active Substance: CANNABIDIOL
     Indication: Product used for unknown indication
     Dosage: 7 ML (700 MG TOTAL) EVERY MORNING AND 6 ML (600 MG TOTAL) EVERY EVENING
     Route: 048

REACTIONS (1)
  - Fall [Unknown]
